FAERS Safety Report 21289909 (Version 2)
Quarter: 2022Q3

REPORT INFORMATION
  Report Type: Spontaneous
  Country: US (occurrence: US)
  Receive Date: 20220902
  Receipt Date: 20220920
  Transmission Date: 20221027
  Serious: Yes (Hospitalization, Other)
  Sender: FDA-Public Use
  Company Number: US-GILEAD-2022-0596070

PATIENT
  Age: 57 Year
  Sex: Male

DRUGS (38)
  1. YESCARTA [Suspect]
     Active Substance: AXICABTAGENE CILOLEUCEL
     Indication: Diffuse large B-cell lymphoma
     Dosage: UNK
     Route: 042
     Dates: start: 20220718, end: 20220718
  2. DILAUDID [Concomitant]
     Active Substance: HYDROMORPHONE HYDROCHLORIDE
  3. ACYCLOVIR [Concomitant]
     Active Substance: ACYCLOVIR
  4. ALBUMIN HUMAN [Concomitant]
     Active Substance: ALBUMIN HUMAN
  5. ALLOPURINOL [Concomitant]
     Active Substance: ALLOPURINOL
  6. AMLODIPINE [Concomitant]
     Active Substance: AMLODIPINE BESYLATE
  7. AUGMENTIN [Concomitant]
     Active Substance: AMOXICILLIN\CLAVULANATE POTASSIUM
  8. MIACALCIN [Concomitant]
     Active Substance: CALCITONIN SALMON
  9. CALCIUM GLUCONATE [Concomitant]
     Active Substance: CALCIUM GLUCONATE
  10. CELECOXIB [Concomitant]
     Active Substance: CELECOXIB
  11. CYCLOPHOSPHAMIDE [Concomitant]
     Active Substance: CYCLOPHOSPHAMIDE
  12. DAPTOMYCIN [Concomitant]
     Active Substance: DAPTOMYCIN
  13. DULOXETINE [Concomitant]
     Active Substance: DULOXETINE
  14. FILGRASTIM [Concomitant]
     Active Substance: FILGRASTIM
  15. FLUDARABINE [Concomitant]
     Active Substance: FLUDARABINE PHOSPHATE
  16. FOLIC ACID [Concomitant]
     Active Substance: FOLIC ACID
  17. FUROSEMIDE [Concomitant]
     Active Substance: FUROSEMIDE
  18. GABAPENTIN [Concomitant]
     Active Substance: GABAPENTIN
  19. GADOBUTROL [Concomitant]
     Active Substance: GADOBUTROL
  20. HYDRALAZINE [Concomitant]
     Active Substance: HYDRALAZINE HYDROCHLORIDE
  21. HYDROMORPHONE [Concomitant]
     Active Substance: HYDROMORPHONE
  22. PRIVIGEN [Concomitant]
     Active Substance: HUMAN IMMUNOGLOBULIN G
  23. ISAVUCONAZONIUM [Concomitant]
     Active Substance: ISAVUCONAZONIUM
  24. KETOROLAC [Concomitant]
     Active Substance: KETOROLAC TROMETHAMINE
  25. LEVOFLOXACIN [Concomitant]
     Active Substance: LEVOFLOXACIN
  26. LEVETIRACETAM [Concomitant]
     Active Substance: LEVETIRACETAM
  27. LINEZOLID [Concomitant]
     Active Substance: LINEZOLID
  28. LORATADINE [Concomitant]
     Active Substance: LORATADINE
  29. LORAZEPAM [Concomitant]
     Active Substance: LORAZEPAM
  30. MEROPENEM [Concomitant]
     Active Substance: MEROPENEM
  31. METOPROLOL [Concomitant]
     Active Substance: METOPROLOL
  32. MORPHINE [Concomitant]
     Active Substance: MORPHINE
  33. ZOSYN [Concomitant]
     Active Substance: PIPERACILLIN SODIUM\TAZOBACTAM SODIUM
  34. QUETIAPINE [Concomitant]
     Active Substance: QUETIAPINE
  35. BACTRIM [Concomitant]
     Active Substance: SULFAMETHOXAZOLE\TRIMETHOPRIM
  36. TRAMADOL [Concomitant]
     Active Substance: TRAMADOL
  37. VALACYCLOVIR [Concomitant]
     Active Substance: VALACYCLOVIR HYDROCHLORIDE
  38. VORICONAZOLE [Concomitant]
     Active Substance: VORICONAZOLE

REACTIONS (4)
  - Neurotoxicity [Recovered/Resolved]
  - Cytokine release syndrome [Recovered/Resolved]
  - Confusional state [Recovered/Resolved]
  - Fall [Recovered/Resolved]

NARRATIVE: CASE EVENT DATE: 20220719
